FAERS Safety Report 11275410 (Version 1)
Quarter: 2015Q3

REPORT INFORMATION
  Report Type: Spontaneous
  Country: US (occurrence: None)
  Receive Date: 20150714
  Receipt Date: 20150714
  Transmission Date: 20151125
  Serious: Yes (Other)
  Sender: FDA-Public Use
  Company Number: TPU2015-00327

PATIENT
  Age: 78 Year
  Sex: Male
  Weight: 84.37 kg

DRUGS (8)
  1. ZOCOR [Concomitant]
     Active Substance: SIMVASTATIN
  2. MECLIZINE (MECLOZINE) [Concomitant]
  3. ECOTRIN [Concomitant]
     Active Substance: ASPIRIN
  4. LIDODERM [Suspect]
     Active Substance: LIDOCAINE
     Indication: BACK PAIN
     Dosage: 2 PLASTER, 1 IN 1 D, TOPICAL
     Route: 061
     Dates: start: 2005
  5. METOPROLOL [Concomitant]
     Active Substance: METOPROLOL
  6. LIDODERM [Suspect]
     Active Substance: LIDOCAINE
     Indication: ARTHRALGIA
     Dosage: 2 PLASTER, 1 IN 1 D, TOPICAL
     Route: 061
     Dates: start: 2005
  7. JALYN (DUTAS-T) [Concomitant]
  8. TYRANEX (ALL OTHER THERAPEUTIC PRODUCTS) [Concomitant]

REACTIONS (5)
  - Arthralgia [None]
  - Vertigo [None]
  - Arthropathy [None]
  - Hernia repair [None]
  - Extrasystoles [None]

NARRATIVE: CASE EVENT DATE: 2007
